FAERS Safety Report 7864540-5 (Version None)
Quarter: 2011Q4

REPORT INFORMATION
  Report Type: 
  Country: None (occurrence: None)
  Receive Date: 20111028
  Receipt Date: 20111024
  Transmission Date: 20120403
  Serious: No
  Sender: FDA-Public Use
  Company Number: US-PFIZER INC-2011257693

PATIENT
  Sex: Female
  Weight: 72.56 kg

DRUGS (1)
  1. EFFEXOR XR [Suspect]
     Indication: RELAXATION THERAPY
     Dosage: 150 MG, DAILY
     Route: 048
     Dates: start: 20080101

REACTIONS (2)
  - FEELING HOT [None]
  - RASH PRURITIC [None]
